FAERS Safety Report 23298580 (Version 2)
Quarter: 2024Q1

REPORT INFORMATION
  Report Type: Spontaneous
  Country: RS (occurrence: RS)
  Receive Date: 20231214
  Receipt Date: 20240105
  Transmission Date: 20240410
  Serious: Yes (Hospitalization)
  Sender: FDA-Public Use
  Company Number: RS-009507513-2312SRB003125

PATIENT
  Age: 43 Year
  Sex: Male

DRUGS (2)
  1. ISENTRESS [Suspect]
     Active Substance: RALTEGRAVIR POTASSIUM
     Indication: Antiretroviral therapy
     Dosage: 600 MILLIGRAM, BID
     Route: 048
  2. EMTRICITABINE\TENOFOVIR DISOPROXIL FUMARATE [Concomitant]
     Active Substance: EMTRICITABINE\TENOFOVIR DISOPROXIL FUMARATE
     Indication: Antiretroviral therapy
     Dosage: TENOFOVIR DISOPROXIL FUMARATE (TDF) 245 MG (+) EMTRICITABINE (FTC) 200 MG, QD

REACTIONS (7)
  - Somnolence [Unknown]
  - Affect lability [Unknown]
  - Memory impairment [Unknown]
  - Weight increased [Unknown]
  - CD4 lymphocytes abnormal [Unknown]
  - CD8 lymphocytes abnormal [Unknown]
  - Product availability issue [Unknown]

NARRATIVE: CASE EVENT DATE: 20230101
